FAERS Safety Report 4467536-9 (Version None)
Quarter: 2004Q4

REPORT INFORMATION
  Report Type: 
  Country: None (occurrence: None)
  Receive Date: 20041006
  Receipt Date: 20041004
  Transmission Date: 20050328
  Serious: Yes (Hospitalization)
  Sender: FDA-Public Use
  Company Number: DE-MERCK-0410DEU00043

PATIENT
  Age: 63 Year
  Sex: Female

DRUGS (2)
  1. VIOXX [Suspect]
     Indication: PAIN
     Route: 048
     Dates: start: 20030101, end: 20040716
  2. VIOXX [Suspect]
     Indication: HIP SURGERY
     Route: 048
     Dates: start: 20030101, end: 20040716

REACTIONS (3)
  - ABDOMINAL DISTENSION [None]
  - INTESTINAL HAEMORRHAGE [None]
  - MEDICATION ERROR [None]
